FAERS Safety Report 5041688-4 (Version None)
Quarter: 2006Q2

REPORT INFORMATION
  Report Type: 
  Country: None (occurrence: None)
  Receive Date: 20060630
  Receipt Date: 20060620
  Transmission Date: 20061013
  Serious: Yes (Other)
  Sender: FDA-Public Use
  Company Number: 2006078518

PATIENT
  Age: 57 Year
  Sex: Male
  Weight: 88.4514 kg

DRUGS (1)
  1. XANAX [Suspect]
     Indication: ANXIETY DISORDER
     Dosage: 0.5 MG (0.25 MG, BID: EVERY DAY)

REACTIONS (1)
  - AMNESIA [None]
